FAERS Safety Report 6355212-7 (Version None)
Quarter: 2009Q3

REPORT INFORMATION
  Report Type: 
  Country: None (occurrence: None)
  Receive Date: 20090914
  Receipt Date: 20090902
  Transmission Date: 20100115
  Serious: Yes (Hospitalization)
  Sender: FDA-Public Use
  Company Number: IN-PFIZER INC-2009258433

PATIENT
  Age: 50 Year

DRUGS (9)
  1. SUNITINIB MALATE [Suspect]
     Indication: GASTROINTESTINAL STROMAL TUMOUR
     Dosage: 37.5 MG, 1X/DAY, FOR 28 DAYS
     Route: 048
     Dates: start: 20090722
  2. ATEN [Concomitant]
     Dosage: UNK
     Route: 048
     Dates: start: 20070101, end: 20090818
  3. AMLODIPINE [Concomitant]
     Dosage: UNK
     Route: 048
     Dates: start: 20070101
  4. METFORMIN [Concomitant]
     Dosage: UNK
     Route: 048
     Dates: start: 20070101, end: 20090819
  5. COMBIFLAM [Concomitant]
     Route: 048
     Dates: start: 20080101, end: 20090818
  6. CHLORHEXIDINE [Concomitant]
     Route: 048
     Dates: start: 20080101, end: 20090818
  7. ALLOPURINOL [Concomitant]
     Dosage: UNK
     Route: 048
     Dates: start: 20080101, end: 20090818
  8. LASIX [Concomitant]
     Dosage: UNK
     Route: 048
     Dates: start: 20080101, end: 20090818
  9. ELTROXIN [Concomitant]
     Dosage: UNK
     Route: 048
     Dates: start: 20070101

REACTIONS (1)
  - HEMIPARESIS [None]
